FAERS Safety Report 5810913-1 (Version None)
Quarter: 2008Q3

REPORT INFORMATION
  Report Type: 
  Country: None (occurrence: None)
  Receive Date: 20080716
  Receipt Date: 20080704
  Transmission Date: 20090109
  Serious: Yes (Other)
  Sender: FDA-Public Use
  Company Number: PHNU2008DE02024

PATIENT
  Sex: Female
  Weight: 75 kg

DRUGS (3)
  1. RASILEZ [Suspect]
     Dosage: 1 DF, QD
     Route: 048
     Dates: start: 20080313, end: 20080321
  2. CARVEDILOL [Concomitant]
     Indication: HYPERTENSION
     Dosage: 1 DF, QD
     Route: 048
     Dates: start: 20060101
  3. VIVACE /AUT/ [Concomitant]
     Indication: HYPERTENSION
     Dosage: 0.5 DF, QD
     Route: 048
     Dates: start: 20060101

REACTIONS (3)
  - ALANINE AMINOTRANSFERASE INCREASED [None]
  - GAMMA-GLUTAMYLTRANSFERASE INCREASED [None]
  - HEPATITIS [None]
